FAERS Safety Report 5448325-5 (Version None)
Quarter: 2007Q3

REPORT INFORMATION
  Report Type: 
  Country: None (occurrence: None)
  Receive Date: 20070906
  Receipt Date: 20070906
  Transmission Date: 20080115
  Serious: Yes (Hospitalization, Disabling, Other)
  Sender: FDA-Public Use
  Company Number: None

PATIENT
  Age: 40 Year
  Sex: Female
  Weight: 104.3273 kg

DRUGS (1)
  1. HYDROXYCHLOROQUINE SUL TABS 200MG WATSON [Suspect]
     Indication: SYSTEMIC LUPUS ERYTHEMATOSUS
     Dosage: 2 TABLETS EVERY MORNING PO
     Route: 048
     Dates: start: 20070611, end: 20070728

REACTIONS (7)
  - BLOOD BILIRUBIN INCREASED [None]
  - JAUNDICE [None]
  - LIVER FUNCTION TEST ABNORMAL [None]
  - PAIN [None]
  - PERICARDIAL EFFUSION [None]
  - PLEURAL EFFUSION [None]
  - URINARY TRACT INFECTION [None]
